FAERS Safety Report 7114481-6 (Version None)
Quarter: 2010Q4

REPORT INFORMATION
  Report Type: 
  Country: None (occurrence: None)
  Receive Date: 20101119
  Receipt Date: 20101116
  Transmission Date: 20110411
  Serious: Yes (Hospitalization, Other)
  Sender: FDA-Public Use
  Company Number: DE-ABBOTT-10P-062-0672934-00

PATIENT
  Sex: Male
  Weight: 90 kg

DRUGS (1)
  1. HUMIRA [Suspect]
     Indication: COLITIS ULCERATIVE
     Dosage: 80 MG THEN 40 MG
     Route: 058
     Dates: start: 20100818, end: 20100915

REACTIONS (2)
  - C-REACTIVE PROTEIN INCREASED [None]
  - PANCREATITIS [None]
